FAERS Safety Report 5495308-5 (Version None)
Quarter: 2007Q4

REPORT INFORMATION
  Report Type: 
  Country: None (occurrence: None)
  Receive Date: 20071023
  Receipt Date: 20071008
  Transmission Date: 20080405
  Serious: Yes (Hospitalization)
  Sender: FDA-Public Use
  Company Number: WAES 0710USA02946

PATIENT
  Age: 83 Year
  Sex: Male
  Weight: 63.9572 kg

DRUGS (14)
  1. CAP VORINOSTAT UNK [Suspect]
     Indication: MYELODYSPLASTIC SYNDROME
     Dosage: 400 MG/DAILY/PO
     Route: 048
     Dates: start: 20070921, end: 20071004
  2. MIRALAX [Concomitant]
  3. PEPCID [Concomitant]
  4. TYLENOL (CAPLET) [Concomitant]
  5. VALTREX [Concomitant]
  6. ZOFRAN [Concomitant]
  7. ZOLOFT [Concomitant]
  8. ASPIRIN [Concomitant]
  9. CEFEPIME [Concomitant]
  10. DIPHENOXYLATE [Concomitant]
  11. GUAIFENESIN [Concomitant]
  12. LEVOTHYROXINE SODIUM [Concomitant]
  13. PROPOXYPHENE HYDROCHLORIDE [Concomitant]
  14. SENNA [Concomitant]

REACTIONS (9)
  - AGGRESSION [None]
  - BLOOD CREATINE INCREASED [None]
  - CONDITION AGGRAVATED [None]
  - CONFUSIONAL STATE [None]
  - MENTAL IMPAIRMENT [None]
  - MENTAL STATUS CHANGES [None]
  - ORAL INTAKE REDUCED [None]
  - PNEUMONIA [None]
  - RENAL IMPAIRMENT [None]
